FAERS Safety Report 5040425-7 (Version None)
Quarter: 2006Q2

REPORT INFORMATION
  Report Type: 
  Country: None (occurrence: None)
  Receive Date: 20060630
  Receipt Date: 20060623
  Transmission Date: 20061013
  Serious: Yes (Life-Threatening, Hospitalization)
  Sender: FDA-Public Use
  Company Number: 452246

PATIENT
  Age: 72 Year
  Sex: Male

DRUGS (10)
  1. CARVEDILOL [Suspect]
     Indication: HYPERTENSION
     Dosage: 10MG PER DAY
     Route: 048
     Dates: start: 20060115, end: 20060418
  2. CONIEL [Suspect]
     Indication: HYPERTENSION
     Dosage: 4MG PER DAY
     Route: 048
     Dates: start: 20060115, end: 20060418
  3. CARDENALIN [Suspect]
     Indication: HYPERTENSION
     Dosage: 2MG PER DAY
     Route: 048
     Dates: start: 20060115, end: 20060418
  4. OLMETEC [Suspect]
     Indication: HYPERTENSION
     Dosage: 20MG PER DAY
     Route: 048
     Dates: start: 20060115, end: 20060418
  5. ITRACONAZOLE [Suspect]
     Indication: FUNGAL SKIN INFECTION
     Dosage: 200MG TWICE PER DAY
     Route: 048
     Dates: start: 20060303
  6. ZITHROMAC [Concomitant]
     Indication: FUNGAL SKIN INFECTION
     Dosage: 2CAP PER DAY
     Dates: start: 20060217, end: 20060219
  7. PANSPORIN [Concomitant]
     Dosage: 1TAB THREE TIMES PER DAY
     Route: 048
     Dates: start: 20060309, end: 20060315
  8. LOXONIN [Concomitant]
     Dates: start: 20060309
  9. CHLORHEXIDINE GLUCONATE [Concomitant]
     Dates: start: 20060309
  10. LANOCONAZOLE [Concomitant]
     Dosage: 10ML PER DAY
     Dates: start: 20060414

REACTIONS (10)
  - BLOOD PRESSURE SYSTOLIC DECREASED [None]
  - BRADYCARDIA [None]
  - DIZZINESS POSTURAL [None]
  - FUNGAL INFECTION [None]
  - NASOPHARYNGITIS [None]
  - NAUSEA [None]
  - SINUS ARRHYTHMIA [None]
  - SINUS BRADYCARDIA [None]
  - VISUAL DISTURBANCE [None]
  - VOMITING [None]
